FAERS Safety Report 15762050 (Version 1)
Quarter: 2018Q4

REPORT INFORMATION
  Report Type: Spontaneous
  Country: CN (occurrence: CN)
  Receive Date: 20181226
  Receipt Date: 20181226
  Transmission Date: 20190205
  Serious: Yes (Other)
  Sender: FDA-Public Use
  Company Number: CN-MYLANLABS-2018M1095531

PATIENT
  Age: 63 Year
  Sex: Male

DRUGS (7)
  1. APATINIB [Concomitant]
     Active Substance: APATINIB
     Indication: ADENOSQUAMOUS CELL LUNG CANCER STAGE IV
     Dosage: DOSE REDUCED TO 200MG/DAY
     Route: 048
  2. APATINIB [Concomitant]
     Active Substance: APATINIB
     Dosage: 200 MILLIGRAM, QD
     Route: 048
  3. ZOLEDRONIC ACID [Concomitant]
     Active Substance: ZOLEDRONIC ACID
     Indication: ADENOSQUAMOUS CELL LUNG CANCER STAGE IV
     Dosage: EVERY 21 DAYS WITH CHEMOTHERAPY
     Route: 065
  4. PEMETREXED. [Suspect]
     Active Substance: PEMETREXED
     Indication: ADENOSQUAMOUS CELL LUNG CANCER STAGE IV
     Dosage: BODY SURFACE AREA
     Route: 065
  5. AVASTIN [Suspect]
     Active Substance: BEVACIZUMAB
     Indication: ADENOSQUAMOUS CELL LUNG CANCER STAGE IV
     Dosage: BODY WEIGHT
     Route: 065
  6. GEMCITABINE [Suspect]
     Active Substance: GEMCITABINE\GEMCITABINE HYDROCHLORIDE
     Indication: ADENOSQUAMOUS CELL LUNG CANCER STAGE IV
     Dosage: ON DAY 1 AND DAY 8
     Route: 065
  7. CISPLATIN. [Suspect]
     Active Substance: CISPLATIN
     Indication: ADENOSQUAMOUS CELL LUNG CANCER STAGE IV
     Dosage: BODY SURFACE AREA
     Route: 065

REACTIONS (2)
  - Thrombocytopenia [Recovered/Resolved]
  - Fatigue [Recovered/Resolved]
